FAERS Safety Report 15002610 (Version 1)
Quarter: 2018Q2

REPORT INFORMATION
  Report Type: Spontaneous
  Country: BE (occurrence: BE)
  Receive Date: 20180612
  Receipt Date: 20180612
  Transmission Date: 20180711
  Serious: Yes (Other)
  Sender: FDA-Public Use
  Company Number: BE-GUERBET-BE-20180013

PATIENT
  Age: 44 Year
  Sex: Female

DRUGS (1)
  1. LIPIODOL ULTRA-FLUIDE [Suspect]
     Active Substance: ETHIODIZED OIL
     Indication: LYMPHANGIOGRAM
     Dosage: 20 ML BILATERALLY
     Route: 050

REACTIONS (2)
  - Cerebral artery embolism [Not Recovered/Not Resolved]
  - Intentional overdose [Not Recovered/Not Resolved]
